FAERS Safety Report 6639340-4 (Version None)
Quarter: 2010Q1

REPORT INFORMATION
  Report Type: 
  Country: None (occurrence: None)
  Receive Date: 20100315
  Receipt Date: 20100301
  Transmission Date: 20100710
  Serious: Yes (Death, Hospitalization, Other)
  Sender: FDA-Public Use
  Company Number: A-NJ2009-27541

PATIENT
  Age: 76 Year
  Sex: Female

DRUGS (13)
  1. TRACLEER [Suspect]
     Indication: PULMONARY ARTERIAL HYPERTENSION
     Dosage: 125 MG, BID, ORAL
     Route: 048
     Dates: start: 20080924, end: 20091230
  2. REVATIO [Concomitant]
  3. FOLATE (FOLIC ACID) [Concomitant]
  4. NEURONTIN [Concomitant]
  5. INSULIN (INSULIN) [Concomitant]
  6. SYNTHROID [Concomitant]
  7. MIDODRINE HYDROCHLORIDE [Concomitant]
  8. PRAVACHOL [Concomitant]
  9. METAMUCIL-2 [Concomitant]
  10. PROTONIX (PIANTOPRAZOLE) [Concomitant]
  11. XOPENEX [Concomitant]
  12. PREDNISONE [Concomitant]
  13. HYDROXYZINE [Concomitant]

REACTIONS (20)
  - BLOOD CREATINE INCREASED [None]
  - BLOOD GLUCOSE INCREASED [None]
  - CARDIAC FAILURE CONGESTIVE [None]
  - CLOSTRIDIUM DIFFICILE COLITIS [None]
  - FATIGUE [None]
  - GASTROINTESTINAL HAEMORRHAGE [None]
  - HAEMATOCRIT DECREASED [None]
  - HAEMOGLOBIN DECREASED [None]
  - HYPOTENSION [None]
  - IDIOPATHIC THROMBOCYTOPENIC PURPURA [None]
  - MALAISE [None]
  - MEAN CELL VOLUME INCREASED [None]
  - MYOCARDIAL ISCHAEMIA [None]
  - OFF LABEL USE [None]
  - PLEURAL EFFUSION [None]
  - PNEUMONIA [None]
  - PORTAL HYPERTENSIVE GASTROPATHY [None]
  - RESPIRATORY FAILURE [None]
  - SHOCK [None]
  - TROPONIN INCREASED [None]
